FAERS Safety Report 22201603 (Version 2)
Quarter: 2023Q2

REPORT INFORMATION
  Report Type: Report from Study
  Country: US (occurrence: US)
  Receive Date: 20230412
  Receipt Date: 20230531
  Transmission Date: 20230722
  Serious: Yes (Hospitalization)
  Sender: FDA-Public Use
  Company Number: US-BRISTOL-MYERS SQUIBB COMPANY-2023-051307

PATIENT
  Age: 71 Year
  Sex: Female

DRUGS (35)
  1. CAMZYOS [Suspect]
     Active Substance: MAVACAMTEN
     Indication: Hypertrophic cardiomyopathy
     Dosage: DOSE : UNAVAILABLE;     FREQ : TAKE 1 CAPSULE BY MOUTH ONCE DAILY
     Route: 048
     Dates: start: 20230125, end: 202303
  2. POTASSIUM CHLORIDE [Concomitant]
     Active Substance: POTASSIUM CHLORIDE
     Indication: Product used for unknown indication
     Dosage: WAX MATRIX
     Route: 048
  3. METOPROLOL SUCCINATE [Concomitant]
     Active Substance: METOPROLOL SUCCINATE
     Indication: Product used for unknown indication
     Dosage: EXTENDED-RELEASE
     Route: 048
  4. MAGNESIUM HYDROXIDE [Concomitant]
     Active Substance: MAGNESIUM HYDROXIDE
     Indication: Product used for unknown indication
     Route: 048
  5. TORSEMIDE [Concomitant]
     Active Substance: TORSEMIDE
     Indication: Product used for unknown indication
     Route: 048
  6. SPIRONOLACTONE [Concomitant]
     Active Substance: SPIRONOLACTONE
     Indication: Product used for unknown indication
     Route: 048
  7. WARFARIN SODIUM [Concomitant]
     Active Substance: WARFARIN SODIUM
     Indication: Product used for unknown indication
     Route: 048
  8. LEVOTHYROXINE SODIUM [Concomitant]
     Active Substance: LEVOTHYROXINE SODIUM
     Indication: Product used for unknown indication
     Route: 048
  9. ALLOPURINOL [Concomitant]
     Active Substance: ALLOPURINOL
     Indication: Product used for unknown indication
     Route: 048
  10. SERTRALINE HYDROCHLORIDE [Concomitant]
     Active Substance: SERTRALINE HYDROCHLORIDE
     Indication: Product used for unknown indication
     Route: 048
  11. VITAMIN D NOS [Concomitant]
     Active Substance: VITAMIN D NOS
     Indication: Product used for unknown indication
     Route: 048
  12. VITAMIN E [Concomitant]
     Active Substance: .ALPHA.-TOCOPHEROL
     Indication: Product used for unknown indication
     Route: 048
  13. ATORVASTATIN CALCIUM [Concomitant]
     Active Substance: ATORVASTATIN CALCIUM
     Indication: Product used for unknown indication
     Route: 048
  14. MONTELUKAST SODIUM [Concomitant]
     Active Substance: MONTELUKAST SODIUM
     Indication: Product used for unknown indication
     Route: 048
  15. GABAPENTIN [Concomitant]
     Active Substance: GABAPENTIN
     Indication: Product used for unknown indication
     Route: 048
  16. DULAGLUTIDE [Concomitant]
     Active Substance: DULAGLUTIDE
     Indication: Product used for unknown indication
     Route: 048
  17. INSULIN LISPRO [Concomitant]
     Active Substance: INSULIN LISPRO
     Indication: Product used for unknown indication
  18. INSULIN GLARGINE [Concomitant]
     Active Substance: INSULIN GLARGINE
     Indication: Product used for unknown indication
  19. HUMALOG [Concomitant]
     Active Substance: INSULIN LISPRO
     Indication: Product used for unknown indication
  20. TRULICITY [Concomitant]
     Active Substance: DULAGLUTIDE
     Indication: Product used for unknown indication
  21. BASAGLAR [Concomitant]
     Active Substance: INSULIN GLARGINE
     Indication: Product used for unknown indication
  22. PANTOPRAZOLE [Concomitant]
     Active Substance: PANTOPRAZOLE
     Indication: Product used for unknown indication
  23. POTASSIUM [Concomitant]
     Active Substance: POTASSIUM
     Indication: Product used for unknown indication
  24. METOPROLOL [Concomitant]
     Active Substance: METOPROLOL
     Indication: Product used for unknown indication
  25. MAGNESIUM [Concomitant]
     Active Substance: MAGNESIUM
     Indication: Product used for unknown indication
  26. SINGULAIR [Concomitant]
     Active Substance: MONTELUKAST SODIUM
     Indication: Product used for unknown indication
  27. ATORVASTATIN [Concomitant]
     Active Substance: ATORVASTATIN
     Indication: Product used for unknown indication
  28. TYLENOL [Concomitant]
     Active Substance: ACETAMINOPHEN
     Indication: Product used for unknown indication
  29. IBUPROFEN [Concomitant]
     Active Substance: IBUPROFEN
     Indication: Product used for unknown indication
  30. NORCO [Concomitant]
     Active Substance: ACETAMINOPHEN\HYDROCODONE BITARTRATE
     Indication: Product used for unknown indication
  31. ALLEGRA [Concomitant]
     Active Substance: FEXOFENADINE HYDROCHLORIDE
     Indication: Product used for unknown indication
  32. SYSTANE (HYPROMELLOSE 2910 (4000 MPA.S)) [Concomitant]
     Active Substance: HYPROMELLOSE 2910 (4000 MPA.S)
     Indication: Product used for unknown indication
  33. ZOLOFT [Concomitant]
     Active Substance: SERTRALINE HYDROCHLORIDE
     Indication: Product used for unknown indication
  34. VITAMINS NOS [Concomitant]
     Active Substance: VITAMINS
     Indication: Product used for unknown indication
  35. AMOXICILLIN\CLAVULANATE POTASSIUM [Concomitant]
     Active Substance: AMOXICILLIN\CLAVULANATE POTASSIUM
     Indication: Product used for unknown indication

REACTIONS (1)
  - Illness [Recovered/Resolved]

NARRATIVE: CASE EVENT DATE: 20230301
